FAERS Safety Report 23967451 (Version 1)
Quarter: 2024Q2

REPORT INFORMATION
  Report Type: Report from Study
  Country: US (occurrence: None)
  Receive Date: 20240612
  Receipt Date: 20240612
  Transmission Date: 20240715
  Serious: Yes (Other)
  Sender: FDA-Public Use
  Company Number: 2024A130343

PATIENT
  Sex: Female

DRUGS (1)
  1. FASENRA [Suspect]
     Active Substance: BENRALIZUMAB
     Route: 058

REACTIONS (7)
  - Pyrexia [Unknown]
  - Anaemia [Unknown]
  - Product dose omission issue [Unknown]
  - Asthma [Unknown]
  - Red blood cell count decreased [Unknown]
  - Headache [Unknown]
  - Feeling abnormal [Unknown]
